FAERS Safety Report 9521682 (Version 1)
Quarter: 2013Q1

REPORT INFORMATION
  Report Type: Spontaneous
  Country: US (occurrence: None)
  Receive Date: 20130305
  Receipt Date: 20130305
  Transmission Date: 20140127
  Serious: Yes (Other)
  Sender: FDA-Public Use
  Company Number: 163-21880-12072959

PATIENT
  Age: 57 Year
  Sex: Male
  Weight: 97.52 kg

DRUGS (21)
  1. REVLIMID (LENALIDOMIDE) (CAPSULES) [Suspect]
     Indication: PLASMA CELL MYELOMA
     Route: 048
     Dates: start: 20100913
  2. ASPIRIN (ACETYLSALICYCLIC ACID) [Concomitant]
  3. ATARAX (HYDROXYZINE HYDROCHLORIDE) [Concomitant]
  4. CALCIUM (CALCIUM) [Concomitant]
  5. SOTALOL (SOTALOL) [Concomitant]
  6. CO Q 10 (UBIDECAREBONE) [Concomitant]
  7. VISTARIL (HYDROXYZINE EMBONATE) [Concomitant]
  8. DEMEROL (PETHIDINE HYDROCHLORIDE) [Concomitant]
  9. DILTIAZEM (DILTIAZEM) [Concomitant]
  10. VITAMIN B COMPLEX (B-KOMPLEX ^LECIVA^) [Concomitant]
  11. FOLIC ACID (FOLIC ACID) [Concomitant]
  12. HYDROMORPHONE (HYDROMORPHONE) [Concomitant]
  13. VITAMIN D3 (COLECALCIFEROL) [Concomitant]
  14. IMMUNE GLOBULIN (IMMUNOGLOBULIN) [Concomitant]
  15. LISINOPRIL (LISINOPRIL) [Concomitant]
  16. ZETIA (EZETIMIBE) [Concomitant]
  17. NIASPAN (NICOTINIC ACID) [Concomitant]
  18. NITROGLYCERIN (GLYCERYL TRINITRATE) [Concomitant]
  19. ZOLOFT (SERTRALINE HYDROCHLORIDE) [Concomitant]
  20. OMEGA 3 (FISH OIL) [Concomitant]
  21. PLAVIX (CLOPIDOGREL SULFATE) [Concomitant]

REACTIONS (1)
  - Abscess [None]
